FAERS Safety Report 23511636 (Version 4)
Quarter: 2024Q1

REPORT INFORMATION
  Report Type: Report from Study
  Country: US (occurrence: US)
  Receive Date: 20240212
  Receipt Date: 20240325
  Transmission Date: 20240410
  Serious: Yes (Hospitalization, Other)
  Sender: FDA-Public Use
  Company Number: US-UCBSA-2024006232

PATIENT
  Age: 3 Year
  Sex: Female
  Weight: 13.6 kg

DRUGS (2)
  1. FINTEPLA [Suspect]
     Active Substance: FENFLURAMINE
     Indication: Lennox-Gastaut syndrome
     Dosage: 2.1 MILLILITER, 2X/DAY (BID)
     Dates: start: 20231228, end: 20240126
  2. FINTEPLA [Suspect]
     Active Substance: FENFLURAMINE
     Dosage: 2.64 MILLIGRAM, 2X/DAY (BID)
     Dates: start: 202312

REACTIONS (2)
  - Seizure [Recovered/Resolved]
  - Hospitalisation [Recovered/Resolved]

NARRATIVE: CASE EVENT DATE: 20240103
